FAERS Safety Report 12651082 (Version 2)
Quarter: 2019Q1

REPORT INFORMATION
  Report Type: Spontaneous
  Country: US (occurrence: US)
  Receive Date: 20160815
  Receipt Date: 20190321
  Transmission Date: 20190417
  Serious: No
  Sender: FDA-Public Use
  Company Number: US-JAZZ-2016-US-005367

PATIENT
  Sex: Female

DRUGS (23)
  1. ALENDRONATE SODIUM. [Concomitant]
     Active Substance: ALENDRONATE SODIUM
  2. VITAMIN D3 [Concomitant]
     Active Substance: CHOLECALCIFEROL
  3. XYREM [Suspect]
     Active Substance: SODIUM OXYBATE
     Dosage: DOSE ADJUSTMENTS
     Route: 048
  4. ESTRADIOL. [Concomitant]
     Active Substance: ESTRADIOL
  5. TIZANIDINE HCL [Concomitant]
     Active Substance: TIZANIDINE HYDROCHLORIDE
  6. XYREM [Suspect]
     Active Substance: SODIUM OXYBATE
     Indication: INSOMNIA
     Dosage: 3 G, BID
     Route: 048
     Dates: start: 200311, end: 2006
  7. RISPERIDONE. [Concomitant]
     Active Substance: RISPERIDONE
  8. ZOLPIDEM TARTRATE. [Concomitant]
     Active Substance: ZOLPIDEM TARTRATE
  9. XYREM [Suspect]
     Active Substance: SODIUM OXYBATE
     Dosage: 3 G, BID
     Route: 048
     Dates: start: 200702, end: 200804
  10. LORAZEPAM. [Concomitant]
     Active Substance: LORAZEPAM
  11. ORPHENADRINE CITRATE. [Concomitant]
     Active Substance: ORPHENADRINE CITRATE
  12. CLONIDINE HCL [Concomitant]
     Active Substance: CLONIDINE HYDROCHLORIDE
  13. FLUCONAZOLE. [Concomitant]
     Active Substance: FLUCONAZOLE
  14. IBUPROFEN. [Concomitant]
     Active Substance: IBUPROFEN
  15. NYSTATIN. [Concomitant]
     Active Substance: NYSTATIN
  16. SALBUTAMOL [Concomitant]
     Active Substance: ALBUTEROL
  17. XYREM [Suspect]
     Active Substance: SODIUM OXYBATE
     Dosage: 4.5 G, BID
     Route: 048
     Dates: start: 201506
  18. BELSOMRA [Concomitant]
     Active Substance: SUVOREXANT
  19. RESTASIS [Concomitant]
     Active Substance: CYCLOSPORINE
  20. XYREM [Suspect]
     Active Substance: SODIUM OXYBATE
     Indication: SLEEP DISORDER
     Dosage: 2.25 G, BID
     Route: 048
     Dates: start: 200310, end: 200311
  21. FLUTICASONE PROPIONATE. [Concomitant]
     Active Substance: FLUTICASONE PROPIONATE
  22. DIAZEPAM. [Concomitant]
     Active Substance: DIAZEPAM
  23. TOBRADEX [Concomitant]
     Active Substance: DEXAMETHASONE\TOBRAMYCIN

REACTIONS (1)
  - Visual impairment [Not Recovered/Not Resolved]
